FAERS Safety Report 9519026 (Version 1)
Quarter: 2013Q1

REPORT INFORMATION
  Report Type: Spontaneous
  Country: US (occurrence: None)
  Receive Date: 20130305
  Receipt Date: 20130305
  Transmission Date: 20140127
  Serious: Yes (Other)
  Sender: FDA-Public Use
  Company Number: 163-21880-12070740

PATIENT
  Sex: Male

DRUGS (2)
  1. REVLIMID [Suspect]
     Indication: PLASMA CELL MYELOMA
     Dosage: 10 MG, X FOR 11 DAYS, PO
     Route: 048
     Dates: start: 20120224
  2. AMOXICILLIN (AMOXICILLIN) (CAPSULES) [Concomitant]

REACTIONS (5)
  - Renal failure [None]
  - Plasma cell myeloma [None]
  - Hypoaesthesia [None]
  - Salivary hypersecretion [None]
  - Facial pain [None]
